FAERS Safety Report 11064777 (Version 1)
Quarter: 2015Q2

REPORT INFORMATION
  Report Type: Report from Study
  Country: AU (occurrence: AU)
  Receive Date: 20150424
  Receipt Date: 20150424
  Transmission Date: 20150821
  Serious: Yes (Hospitalization, Other)
  Sender: FDA-Public Use
  Company Number: AU-BRISTOL-MYERS SQUIBB COMPANY-15474455

PATIENT
  Age: 75 Year
  Sex: Male

DRUGS (20)
  1. ASTRAGALUS [Concomitant]
  2. LACTEOL FORT [Concomitant]
     Dosage: 1DF=3SACHETS
     Dates: start: 20110113, end: 20110119
  3. VOLTAREN [Concomitant]
     Active Substance: DICLOFENAC SODIUM
     Indication: BACK PAIN
     Dosage: 25 MG, UNK
     Dates: start: 20110611
  4. IPILIMUMAB [Suspect]
     Active Substance: IPILIMUMAB
     Indication: PROSTATE CANCER
     Dosage: ALSO ON 15DEC10
     Route: 042
     Dates: start: 20101013, end: 20110907
  5. ZOMETA [Concomitant]
     Active Substance: ZOLEDRONIC ACID
     Dosage: 4 MG, PRN
     Route: 042
     Dates: start: 20101013
  6. CELESTONE [Concomitant]
     Active Substance: BETAMETHASONE
     Indication: RASH
     Dosage: 1 DF: .029 UNITS NOS
     Route: 061
     Dates: start: 20101104, end: 20110114
  7. MAITAKE MUSHROOMS [Concomitant]
     Indication: NUTRITIONAL SUPPLEMENTATION
     Dosage: OLIVE LEAF
     Dates: start: 2009
  8. FISH OIL [Concomitant]
     Active Substance: FISH OIL
     Indication: NUTRITIONAL SUPPLEMENTATION
     Dosage: UNK
     Route: 048
     Dates: start: 2007
  9. PANADEINE [Concomitant]
     Active Substance: ACETAMINOPHEN\CODEINE PHOSPHATE
     Indication: HEADACHE
     Dosage: 500 MG, PRN
     Route: 048
     Dates: start: 20101212
  10. HERBAL MIXTURE [Concomitant]
     Active Substance: HERBALS
     Dosage: UNK
     Dates: start: 2009
  11. DEXAMETHASONE. [Concomitant]
     Active Substance: DEXAMETHASONE
     Dosage: 4 MG, TOTAL
     Route: 042
     Dates: start: 20101013
  12. PREDNISOLONE. [Concomitant]
     Active Substance: PREDNISOLONE
     Indication: PAIN
     Dosage: 24FEB11-27FEB11- DOSE UNCLEAR-ORAL, 2.5MG:LAST DOSE : 9-FEB12
     Route: 042
     Dates: start: 20101223
  13. HYDROCORTISONE. [Concomitant]
     Active Substance: HYDROCORTISONE
     Dosage: 500 MG, TID
     Route: 042
     Dates: start: 20110103, end: 20110112
  14. ZOLADEX [Concomitant]
     Active Substance: GOSERELIN ACETATE
  15. SPAN-K [Concomitant]
     Indication: DEHYDRATION
     Dosage: 1.2 G, BID
     Dates: start: 20110113, end: 20110119
  16. COLOXYL + SENNA [Concomitant]
     Dosage: UNK
     Route: 048
     Dates: start: 20101126, end: 20101126
  17. MULTI VITAMIN [Concomitant]
     Active Substance: VITAMINS
     Dosage: KI MULTIVITAMIN
     Dates: start: 2009
  18. LUCRIN [Concomitant]
     Active Substance: LEUPROLIDE ACETATE
     Indication: PROSTATE CANCER
     Dosage: 30 MG, Q4MO
     Dates: start: 200808
  19. FUNGILIN [Concomitant]
     Active Substance: AMPHOTERICIN B
     Dosage: 20 MG, UNK
     Dates: start: 20110103, end: 20110114
  20. METRONIDAZOLE. [Concomitant]
     Active Substance: METRONIDAZOLE
     Dosage: 500 MG, TID
     Dates: start: 20110104

REACTIONS (2)
  - Hypophysitis [Recovered/Resolved with Sequelae]
  - Pneumonia [Recovered/Resolved]

NARRATIVE: CASE EVENT DATE: 20110103
